FAERS Safety Report 5403622-4 (Version None)
Quarter: 2007Q3

REPORT INFORMATION
  Report Type: 
  Country: None (occurrence: None)
  Receive Date: 20070802
  Receipt Date: 20070725
  Transmission Date: 20080115
  Serious: Yes (Other)
  Sender: FDA-Public Use
  Company Number: PHEH2007US03200

PATIENT
  Age: 64 Year
  Sex: Female
  Weight: 47.165 kg

DRUGS (15)
  1. SANDOSTATIN LAR [Suspect]
     Indication: CARCINOID SYNDROME
     Dosage: 30 MG EVERY 28 DAYS
     Route: 030
     Dates: start: 20050728, end: 20070301
  2. CLORAZEPATE [Concomitant]
     Dosage: 3.75 MG, QD
     Route: 048
  3. AMBIEN [Concomitant]
     Dosage: 5 MG, QHS
     Route: 048
  4. REGLAN [Concomitant]
     Indication: NAUSEA
     Dosage: 10 MG Q6HRS PRN NAUSEA
     Route: 048
  5. NAPROSYN [Concomitant]
     Dosage: 375 MG, BID
     Route: 048
  6. PLAVIX [Concomitant]
     Dosage: 75 MG, QD
     Route: 048
  7. LISINOPRIL [Concomitant]
     Dosage: 40 MG, QD
  8. TRIAMTERENE [Concomitant]
     Dosage: 37.5 MG, QD
  9. VITAMIN D [Concomitant]
     Dosage: UNK, QD
  10. FLONASE [Concomitant]
     Dosage: UNK, QD
  11. COMBIVENT                               /GFR/ [Concomitant]
     Dosage: UNK, PRN
  12. VERAPAMIL [Concomitant]
     Dosage: 240 MG, QD
  13. ASACOL [Concomitant]
     Dosage: 800 MG, Q8H
  14. CLONIDINE [Concomitant]
     Dosage: 0.3 MG, BID
  15. LOMOTIL [Concomitant]
     Indication: DIARRHOEA
     Dosage: 2.5MG Q6HRS PRN

REACTIONS (29)
  - ABDOMINAL DISTENSION [None]
  - ABDOMINAL PAIN [None]
  - ASCITES [None]
  - ASTHENIA [None]
  - BACK PAIN [None]
  - BLOOD GLUCOSE INCREASED [None]
  - BLOOD POTASSIUM DECREASED [None]
  - CHILLS [None]
  - CHRONIC OBSTRUCTIVE PULMONARY DISEASE [None]
  - DEPRESSION [None]
  - DIARRHOEA [None]
  - DIARRHOEA INFECTIOUS [None]
  - DISEASE PROGRESSION [None]
  - GALLBLADDER DISORDER [None]
  - GENERAL PHYSICAL HEALTH DETERIORATION [None]
  - HAEMATOCRIT DECREASED [None]
  - HAEMOGLOBIN DECREASED [None]
  - HEPATOMEGALY [None]
  - HOT FLUSH [None]
  - LIVER FUNCTION TEST ABNORMAL [None]
  - MALAISE [None]
  - METASTASES TO LIVER [None]
  - METASTASES TO PERITONEUM [None]
  - METASTASES TO SPINE [None]
  - NIGHT SWEATS [None]
  - PLEURAL EFFUSION [None]
  - PRURITUS [None]
  - RASH [None]
  - WEIGHT DECREASED [None]
